FAERS Safety Report 7502111-0 (Version None)
Quarter: 2011Q2

REPORT INFORMATION
  Report Type: 
  Country: None (occurrence: None)
  Receive Date: 20110523
  Receipt Date: 20110523
  Transmission Date: 20111010
  Serious: No
  Sender: FDA-Public Use
  Company Number: None

PATIENT
  Age: 52 Year
  Sex: Female
  Weight: 81.6475 kg

DRUGS (2)
  1. NEURONTIN [Concomitant]
  2. LEVAQUIN [Suspect]
     Indication: SINUSITIS
     Dosage: 1 PILL 1/DAY
     Dates: start: 20110405, end: 20110411

REACTIONS (3)
  - BLISTER [None]
  - DYSKINESIA [None]
  - RASH [None]
